FAERS Safety Report 12534818 (Version 1)
Quarter: 2016Q3

REPORT INFORMATION
  Report Type: Spontaneous
  Country: US (occurrence: None)
  Receive Date: 20160706
  Receipt Date: 20160706
  Transmission Date: 20161109
  Serious: Yes (Death)
  Sender: FDA-Public Use
  Company Number: None

PATIENT
  Age: 44 Year
  Sex: Male

DRUGS (2)
  1. ABILIFY [Suspect]
     Active Substance: ARIPIPRAZOLE
     Indication: SCHIZOAFFECTIVE DISORDER
     Route: 048
  2. CLOZAPINE. [Suspect]
     Active Substance: CLOZAPINE
     Indication: SCHIZOAFFECTIVE DISORDER

REACTIONS (7)
  - Back pain [None]
  - Unresponsive to stimuli [None]
  - Dyspnoea [None]
  - Wheezing [None]
  - Acute respiratory distress syndrome [None]
  - Cardiac hypertrophy [None]
  - Hepatic steatosis [None]

NARRATIVE: CASE EVENT DATE: 20150324
